FAERS Safety Report 25042329 (Version 2)
Quarter: 2025Q1

REPORT INFORMATION
  Report Type: Spontaneous
  Country: FR (occurrence: FR)
  Receive Date: 20250305
  Receipt Date: 20250311
  Transmission Date: 20250408
  Serious: Yes (Other)
  Sender: PFIZER
  Company Number: FR-PFIZER INC-202500046388

PATIENT
  Age: 34 Year
  Sex: Male
  Weight: 72 kg

DRUGS (1)
  1. MINOXIDIL [Suspect]
     Active Substance: MINOXIDIL
     Indication: Post procedural complication
     Dosage: 5 MG, DAILY
     Route: 048
     Dates: start: 20240626, end: 202503

REACTIONS (2)
  - Pericarditis [Recovering/Resolving]
  - Off label use [Unknown]

NARRATIVE: CASE EVENT DATE: 20240101
